FAERS Safety Report 11381570 (Version 1)
Quarter: 2015Q3

REPORT INFORMATION
  Report Type: Spontaneous
  Country: US (occurrence: US)
  Receive Date: 20150814
  Receipt Date: 20150814
  Transmission Date: 20151125
  Serious: No
  Sender: FDA-Public Use
  Company Number: US-TEVA-585966USA

PATIENT
  Age: 49 Year
  Sex: Female

DRUGS (1)
  1. COPAXONE [Suspect]
     Active Substance: GLATIRAMER ACETATE
     Indication: MULTIPLE SCLEROSIS
     Dates: start: 20141201

REACTIONS (5)
  - Chest discomfort [Unknown]
  - Dyspnoea [Unknown]
  - Feeling hot [Unknown]
  - Erythema [Unknown]
  - Flushing [Unknown]

NARRATIVE: CASE EVENT DATE: 20150806
